FAERS Safety Report 21713588 (Version 5)
Quarter: 2023Q4

REPORT INFORMATION
  Report Type: Report from Study
  Country: US (occurrence: US)
  Receive Date: 20221212
  Receipt Date: 20231130
  Transmission Date: 20240109
  Serious: Yes (Other)
  Sender: FDA-Public Use
  Company Number: US-TAKEDA-US202032196

PATIENT
  Sex: Female

DRUGS (1)
  1. HUMAN IMMUNOGLOBULIN G [Suspect]
     Active Substance: HUMAN IMMUNOGLOBULIN G
     Indication: Primary immunodeficiency syndrome
     Dosage: UNK
     Route: 065

REACTIONS (17)
  - Cardiomyopathy [Unknown]
  - Autoimmune disorder [Unknown]
  - Deafness [Unknown]
  - Sleep apnoea syndrome [Unknown]
  - Tooth disorder [Unknown]
  - Irritable bowel syndrome [Unknown]
  - Asherman^s syndrome [Unknown]
  - Blood parathyroid hormone decreased [Unknown]
  - Cortisol decreased [Unknown]
  - Sports injury [Unknown]
  - Injury associated with device [Unknown]
  - Allergy to arthropod sting [Unknown]
  - Sinusitis [Unknown]
  - Illness [Unknown]
  - Arthropathy [Unknown]
  - Headache [Unknown]
  - Fatigue [Unknown]
